FAERS Safety Report 16061073 (Version 3)
Quarter: 2019Q2

REPORT INFORMATION
  Report Type: Spontaneous
  Country: US (occurrence: US)
  Receive Date: 20190312
  Receipt Date: 20190404
  Transmission Date: 20190711
  Serious: Yes (Hospitalization, Other)
  Sender: FDA-Public Use
  Company Number: US-UNITED THERAPEUTICS-UNT-2019-004165

PATIENT
  Age: 64 Year
  Sex: Female
  Weight: 71.66 kg

DRUGS (3)
  1. TADALAFIL. [Concomitant]
     Active Substance: TADALAFIL
     Indication: PRODUCT USED FOR UNKNOWN INDICATION
     Route: 065
  2. REMODULIN [Suspect]
     Active Substance: TREPROSTINIL
     Dosage: 0.009 ?G/KG, CONTINUING
     Route: 041
  3. REMODULIN [Suspect]
     Active Substance: TREPROSTINIL
     Indication: PULMONARY ARTERIAL HYPERTENSION
     Dosage: 0.007 ?G/KG, CONTINUING
     Route: 041
     Dates: start: 20190301

REACTIONS (12)
  - Oxygen saturation decreased [Unknown]
  - Loss of consciousness [Unknown]
  - Dizziness [Unknown]
  - Cardiac dysfunction [Recovering/Resolving]
  - Syncope [Recovering/Resolving]
  - Blood pressure systolic decreased [Recovering/Resolving]
  - Atrial septal defect [Recovering/Resolving]
  - Insomnia [Unknown]
  - Hypoxia [Recovering/Resolving]
  - Fall [Recovered/Resolved]
  - Dyspnoea [Unknown]
  - Malaise [Recovering/Resolving]

NARRATIVE: CASE EVENT DATE: 201903
